FAERS Safety Report 10039112 (Version 1)
Quarter: 2014Q1

REPORT INFORMATION
  Report Type: Spontaneous
  Country: US (occurrence: None)
  Receive Date: 20140306
  Receipt Date: 20140306
  Transmission Date: 20141002
  Serious: Yes (Hospitalization)
  Sender: FDA-Public Use
  Company Number: 163-21880-13084114

PATIENT
  Age: 84 Year
  Sex: Male

DRUGS (14)
  1. REVLIMID [Suspect]
     Indication: PLASMA CELL MYELOMA
     Dosage: 15 MG, 21 IN 28 D, PO
     Route: 048
     Dates: start: 20100106
  2. LOVENOX [Concomitant]
  3. COUMADIN (WARFARIN SODIUM) [Concomitant]
  4. XANAX (ALPRAZOLAM) [Concomitant]
  5. AMLODIPINE BESYLATE [Concomitant]
  6. LISINOPRIL (LISINOPRIL) [Concomitant]
  7. LIPITOR (ATORVASTATIN) [Concomitant]
  8. REVLIMID (LENALIDOMIDE) (15 MILLIGRAM, CAPSULES) [Suspect]
     Indication: PLASMA CELL MYELOMA
     Dosage: 15 MG, 21 IN 28 D, PO
     Route: 048
     Dates: start: 20100106
  9. LOVENOX [Concomitant]
  10. COUMADIN (WARFARIN SODIUM) [Concomitant]
  11. XANAX (ALPRAZOLAM) [Concomitant]
  12. AMLODIPINE BESYLATE [Concomitant]
  13. LISINOPRIL (LISINOPRIL) [Concomitant]
  14. LIPITOR (ATORVASTATIN) [Concomitant]

REACTIONS (1)
  - Periorbital cellulitis [None]
